FAERS Safety Report 6382414 (Version 26)
Quarter: 2014Q2

REPORT INFORMATION
  Report Type: Spontaneous
  Country: US (occurrence: US)
  Receive Date: 20070814
  Receipt Date: 20140520
  Transmission Date: 20141212
  Serious: Yes (Death, Hospitalization, Other)
  Sender: FDA-Public Use
  Company Number: PHEH2007US11023

PATIENT
  Age: 79 Year
  Sex: Male

DRUGS (64)
  1. ZOMETA [Suspect]
     Indication: PLASMA CELL MYELOMA
     Dosage: 30 MG, QMO
     Route: 042
     Dates: end: 20050525
  2. AREDIA [Suspect]
     Route: 042
  3. THALIDOMIDE [Concomitant]
     Dates: end: 20050525
  4. CALCIUM WITH VITAMIN D [Concomitant]
  5. STEROIDS NOS [Concomitant]
  6. ARANESP [Concomitant]
  7. DEXAMETHASONE [Concomitant]
  8. ACETAMINOPHEN [Concomitant]
  9. LISINOPRIL [Concomitant]
  10. MAGNESIUM CITRATE [Concomitant]
  11. GATIFLOXACIN [Concomitant]
  12. OXYCODONE HYDROCHLORIDE W/PARACETAMOL [Concomitant]
  13. DOCUSATE [Concomitant]
  14. LACTULOSE [Concomitant]
  15. FLUOCINOLONE ACETONIDE [Concomitant]
  16. GABAPENTIN [Concomitant]
  17. SENNOSIDE [Concomitant]
  18. DECADRON                                /CAN/ [Concomitant]
  19. ZANTAC [Concomitant]
  20. COLACE [Concomitant]
  21. SENNA [Concomitant]
  22. COUMADIN ^BOOTS^ [Concomitant]
  23. GLUCOSAMINE SULFATE W/CHONDROITIN [Concomitant]
  24. FOLIC ACID [Concomitant]
  25. FOSINOPRIL [Concomitant]
     Dosage: 40 MG
  26. CELEXA [Concomitant]
  27. AUGMENTIN [Concomitant]
  28. CELEBREX [Concomitant]
     Dosage: 200 MG
  29. PROCRIT                            /00909301/ [Concomitant]
  30. CHLORHEXIDINE ^CCS^ [Concomitant]
  31. ACETYLSALICYLIC ACID [Concomitant]
  32. CITALOPRAM [Concomitant]
  33. PEPCID [Concomitant]
  34. MAALOX                                  /NET/ [Concomitant]
  35. WARFARIN SODIUM [Concomitant]
  36. CEPHALEXIN [Concomitant]
  37. TORADOL [Concomitant]
  38. ULTRAM [Concomitant]
  39. ALBUTEROL [Concomitant]
  40. FINASTERIDE [Concomitant]
  41. ONDANSETRON [Concomitant]
  42. OXYBUTYNIN [Concomitant]
  43. SIMVASTATIN [Concomitant]
  44. TERAZOSIN [Concomitant]
  45. ASPIRIN ^BAYER^ [Concomitant]
  46. TAMSULOSIN [Concomitant]
  47. CITALOPRAM HYDROBROMIDE [Concomitant]
  48. FUROSEMIDE [Concomitant]
  49. ZINC OXIDE [Concomitant]
  50. LIDOCAINE VISCOUS [Concomitant]
  51. PREDNISOLONE ACETATE [Concomitant]
     Route: 047
  52. DARBEPOETIN ALFA [Concomitant]
  53. AMPICILLIN [Concomitant]
  54. GENTAMYCIN-MP [Concomitant]
  55. CEFAZOLIN [Concomitant]
  56. RANITIDINE [Concomitant]
  57. TRIAMCINOLONE ACETONIDE [Concomitant]
  58. LASIX [Concomitant]
  59. DOVONEX [Concomitant]
  60. DETROL [Concomitant]
  61. KEFLEX [Concomitant]
  62. ALDARA [Concomitant]
  63. IBUPROFEN [Concomitant]
  64. RETIN A [Concomitant]

REACTIONS (173)
  - Respiratory failure [Fatal]
  - Cardiac failure congestive [Fatal]
  - Renal failure chronic [Fatal]
  - Renal failure acute [Fatal]
  - Plasma cell myeloma [Fatal]
  - Bundle branch block right [Unknown]
  - Hyperhidrosis [Unknown]
  - Pyrexia [Unknown]
  - Urge incontinence [Recovered/Resolved]
  - Hyponatraemia [Unknown]
  - Meralgia paraesthetica [Unknown]
  - Congestive cardiomyopathy [Unknown]
  - Spinal fracture [Unknown]
  - Osteonecrosis of jaw [Unknown]
  - Emotional distress [Unknown]
  - Pain [Unknown]
  - Decreased interest [Unknown]
  - Overdose [Unknown]
  - Infection [Unknown]
  - Bone loss [Unknown]
  - Stomatitis [Unknown]
  - Hypophagia [Unknown]
  - Anxiety [Unknown]
  - Deformity [Unknown]
  - Bone lesion [Unknown]
  - Life expectancy shortened [Unknown]
  - Anaemia [Unknown]
  - Diarrhoea [Recovered/Resolved]
  - Sinus bradycardia [Unknown]
  - Sinus arrhythmia [Unknown]
  - Left ventricular hypertrophy [Unknown]
  - Electrocardiogram QRS complex prolonged [Unknown]
  - Cataract [Unknown]
  - Back injury [Unknown]
  - Osteoarthritis [Unknown]
  - Musculoskeletal discomfort [Unknown]
  - Neuralgia [Unknown]
  - Bursitis [Unknown]
  - Pollakiuria [Unknown]
  - Oral pain [Unknown]
  - Candida infection [Unknown]
  - Hiatus hernia [Unknown]
  - Gastrooesophageal reflux disease [Unknown]
  - Osteosclerosis [Unknown]
  - Essential hypertension [Unknown]
  - Back pain [Unknown]
  - Gingivitis [Unknown]
  - Plantar fasciitis [Unknown]
  - Exostosis [Unknown]
  - Hyperlipidaemia [Unknown]
  - Seborrhoeic dermatitis [Unknown]
  - Hypoaesthesia [Unknown]
  - Pain in extremity [Unknown]
  - Otitis externa [Unknown]
  - Wheezing [Unknown]
  - Mitral valve prolapse [Unknown]
  - Bone disorder [Unknown]
  - Joint stiffness [Unknown]
  - Coagulopathy [Unknown]
  - Tooth infection [Unknown]
  - Pain in jaw [Unknown]
  - Swelling [Unknown]
  - Road traffic accident [Unknown]
  - Fall [Unknown]
  - Walking aid user [Unknown]
  - Basal cell carcinoma [Unknown]
  - Deep vein thrombosis [Unknown]
  - Cardiomegaly [Unknown]
  - Body height decreased [Unknown]
  - Mitral valve incompetence [Unknown]
  - Aortic valve incompetence [Unknown]
  - Hypotension [Unknown]
  - Balance disorder [Unknown]
  - Sleep apnoea syndrome [Unknown]
  - Atelectasis [Unknown]
  - Depression [Unknown]
  - Cardiac valve disease [Unknown]
  - Constipation [Unknown]
  - Hypoxia [Unknown]
  - Pleural effusion [Unknown]
  - Intervertebral disc degeneration [Unknown]
  - Spinal column stenosis [Unknown]
  - Dyspnoea [Unknown]
  - Urinary tract infection [Unknown]
  - Nephrolithiasis [Unknown]
  - Cholelithiasis [Unknown]
  - Hepatic cyst [Unknown]
  - Ischaemia [Unknown]
  - Haematuria [Recovered/Resolved]
  - Colon adenoma [Unknown]
  - Large intestine polyp [Unknown]
  - Epistaxis [Unknown]
  - Skin lesion [Unknown]
  - Dyspnoea exertional [Unknown]
  - Tympanosclerosis [Unknown]
  - Nasal congestion [Unknown]
  - Vocal cord inflammation [Unknown]
  - Oropharyngeal pain [Unknown]
  - Pharyngitis [Unknown]
  - Psoriasis [Unknown]
  - Periodontal disease [Unknown]
  - Pulmonary embolism [Unknown]
  - Pigment dispersion syndrome [Unknown]
  - Photosensitivity reaction [Unknown]
  - Rash [Unknown]
  - Coronary artery disease [Unknown]
  - Eczema [Unknown]
  - Cerumen impaction [Unknown]
  - Optic ischaemic neuropathy [Unknown]
  - Cough [Unknown]
  - Peripheral swelling [Unknown]
  - Diverticulum intestinal [Unknown]
  - Inguinal hernia [Unknown]
  - Sepsis [Unknown]
  - Pulmonary oedema [Unknown]
  - Pulmonary congestion [Unknown]
  - Flank pain [Unknown]
  - Muscle strain [Unknown]
  - Chest pain [Unknown]
  - Oedema [Unknown]
  - Abdominal pain [Unknown]
  - Aortic disorder [Unknown]
  - Aortic calcification [Unknown]
  - Arteriosclerosis coronary artery [Unknown]
  - Gastrointestinal oedema [Unknown]
  - Rib fracture [Unknown]
  - Chronic obstructive pulmonary disease [Unknown]
  - Osteopenia [Unknown]
  - Hydronephrosis [Unknown]
  - Spinal osteoarthritis [Unknown]
  - Bladder disorder [Unknown]
  - Plantar fascial fibromatosis [Unknown]
  - Intervertebral disc protrusion [Unknown]
  - Bone pain [Unknown]
  - Muscle spasms [Unknown]
  - Lethargy [Unknown]
  - Osteomyelitis [Unknown]
  - Primary sequestrum [Unknown]
  - Peripheral vascular disorder [Unknown]
  - Peripheral venous disease [Unknown]
  - Ingrowing nail [Unknown]
  - Paraesthesia [Unknown]
  - Varicose vein [Unknown]
  - Haemorrhage [Unknown]
  - Blister [Unknown]
  - Arteriosclerosis [Unknown]
  - Onychomycosis [Unknown]
  - Oedema peripheral [Unknown]
  - Lung disorder [Unknown]
  - Pulmonary hypertension [Unknown]
  - Ventricular hypokinesia [Unknown]
  - Dilatation ventricular [Unknown]
  - Upper respiratory tract infection [Unknown]
  - Atrial fibrillation [Unknown]
  - Thrombophlebitis [Unknown]
  - Generalised oedema [Unknown]
  - Prostatomegaly [Unknown]
  - Confusional state [Unknown]
  - Decubitus ulcer [Unknown]
  - Tricuspid valve disease [Unknown]
  - Left atrial dilatation [Unknown]
  - Right atrial dilatation [Unknown]
  - Aortic dilatation [Unknown]
  - Aortic valve disease [Unknown]
  - Left ventricular failure [Unknown]
  - Lung infiltration [Unknown]
  - Renal injury [Unknown]
  - Spinal compression fracture [Unknown]
  - Respiratory distress [Unknown]
  - Chest discomfort [Unknown]
  - Abdominal pain upper [Unknown]
  - Fatigue [Unknown]
  - Rales [Unknown]
